FAERS Safety Report 15050632 (Version 2)
Quarter: 2020Q2

REPORT INFORMATION
  Report Type: Spontaneous
  Country: US (occurrence: US)
  Receive Date: 20180622
  Receipt Date: 20200616
  Transmission Date: 20200713
  Serious: No
  Sender: FDA-Public Use
  Company Number: US-ASTELLAS-2017US045040

PATIENT
  Age: 62 Year
  Sex: Female

DRUGS (1)
  1. VESICARE [Suspect]
     Active Substance: SOLIFENACIN SUCCINATE
     Indication: MICTURITION URGENCY
     Route: 048
     Dates: start: 20161213

REACTIONS (2)
  - Gastrooesophageal reflux disease [Unknown]
  - Headache [Unknown]

NARRATIVE: CASE EVENT DATE: 20171101
